FAERS Safety Report 15619938 (Version 6)
Quarter: 2024Q1

REPORT INFORMATION
  Report Type: Spontaneous
  Country: UG (occurrence: UG)
  Receive Date: 20181115
  Receipt Date: 20240104
  Transmission Date: 20240409
  Serious: Yes (Congenital Anomaly, Other)
  Sender: FDA-Public Use
  Company Number: UG-AUROBINDO-AUR-APL-2018-054472

PATIENT
  Sex: Male
  Weight: 3.4 kg

DRUGS (4)
  1. TENOFOVIR DISOPROXIL FUMARATE [Suspect]
     Active Substance: TENOFOVIR DISOPROXIL FUMARATE
     Indication: HIV infection
     Dosage: 300 MILLIGRAM, DAILY
     Route: 064
     Dates: start: 20180220
  2. LAMIVUDINE [Suspect]
     Active Substance: LAMIVUDINE
     Indication: HIV infection
     Dosage: 300 MILLIGRAM, DAILY
     Route: 064
     Dates: start: 20180220
  3. EFAVIRENZ [Suspect]
     Active Substance: EFAVIRENZ
     Indication: HIV infection
     Dosage: 600 MILLIGRAM, DAILY
     Route: 064
     Dates: start: 20180220
  4. SULFAMETHOXAZOLE\TRIMETHOPRIM [Suspect]
     Active Substance: SULFAMETHOXAZOLE\TRIMETHOPRIM
     Indication: Product used for unknown indication
     Route: 064

REACTIONS (3)
  - Congenital umbilical hernia [Unknown]
  - Foetal exposure during pregnancy [Unknown]
  - Birth mark [Unknown]

NARRATIVE: CASE EVENT DATE: 20180101
